FAERS Safety Report 7764218-2 (Version None)
Quarter: 2011Q3

REPORT INFORMATION
  Report Type: 
  Country: None (occurrence: None)
  Receive Date: 20110916
  Receipt Date: 20110901
  Transmission Date: 20111222
  Serious: Yes (Life-Threatening, Hospitalization)
  Sender: FDA-Public Use
  Company Number: 1000023159

PATIENT
  Age: 21 Year
  Sex: Female

DRUGS (6)
  1. XANAX [Suspect]
     Dosage: ORAL
     Route: 048
     Dates: start: 20110814
  2. FERROUS SULFATE TAB [Suspect]
     Dosage: ORAL
     Route: 048
     Dates: start: 20110814
  3. ETHINYL ESTRADIOL AND LEVONORGESTREL [Suspect]
     Dosage: ORAL
     Route: 048
     Dates: start: 20110814
  4. DEPAKOTE [Suspect]
     Dosage: (750 MG), ORAL
     Route: 048
     Dates: start: 20110810, end: 20110814
  5. ESCITALOPRAM OXALATE [Suspect]
     Dosage: 20 MG (10 MG, 2 IN 1 D), ORAL
     Route: 048
     Dates: start: 20110728, end: 20110814
  6. ZOLPIDEM TARTRATE [Suspect]
     Dosage: 10 MG (10 MG, 1 IN 1 D)
     Dates: start: 20110802, end: 20110814

REACTIONS (3)
  - RHINITIS [None]
  - EOSINOPHILIC PNEUMONIA [None]
  - SEVERE ACUTE RESPIRATORY SYNDROME [None]
